FAERS Safety Report 10400119 (Version 1)
Quarter: 2014Q3

REPORT INFORMATION
  Report Type: Spontaneous
  Country: NL (occurrence: NL)
  Receive Date: 20140821
  Receipt Date: 20140821
  Transmission Date: 20150326
  Serious: Yes (Other)
  Sender: FDA-Public Use
  Company Number: NL-PFIZER INC-2014230063

PATIENT
  Age: 81 Year
  Sex: Female

DRUGS (2)
  1. PARACETAMOL [Concomitant]
     Active Substance: ACETAMINOPHEN
     Dosage: UNK
  2. LYRICA [Suspect]
     Active Substance: PREGABALIN
     Indication: NEURALGIA
     Dosage: 75 MG, 1X/DAY

REACTIONS (6)
  - Balance disorder [Unknown]
  - Weight increased [Not Recovered/Not Resolved]
  - Aphasia [Unknown]
  - Sudden onset of sleep [Unknown]
  - Gait disturbance [Unknown]
  - Abdominal distension [Unknown]
